FAERS Safety Report 7877538-8 (Version None)
Quarter: 2011Q4

REPORT INFORMATION
  Report Type: 
  Country: None (occurrence: None)
  Receive Date: 20111031
  Receipt Date: 20111025
  Transmission Date: 20120403
  Serious: Yes (Death)
  Sender: FDA-Public Use
  Company Number: US-PFIZER INC-2011207818

PATIENT
  Sex: Female

DRUGS (1)
  1. VFEND [Suspect]
     Indication: ACUTE MYELOID LEUKAEMIA
     Dosage: 200 MG, UNK
     Dates: start: 20110610

REACTIONS (1)
  - DISEASE RECURRENCE [None]
